FAERS Safety Report 17766105 (Version 1)
Quarter: 2020Q2

REPORT INFORMATION
  Report Type: Spontaneous
  Country: LB (occurrence: LB)
  Receive Date: 20200511
  Receipt Date: 20200511
  Transmission Date: 20200714
  Serious: Yes (Death)
  Sender: FDA-Public Use
  Company Number: LB-JNJFOC-20191021013

PATIENT
  Age: 53 Year
  Sex: Female

DRUGS (4)
  1. IBRANCE [Concomitant]
     Active Substance: PALBOCICLIB
     Indication: BREAST CANCER METASTATIC
     Dosage: 125 MG, 1/DAY
     Route: 048
     Dates: start: 201906
  2. TRAMADOL HYDROCHLORIDE. [Suspect]
     Active Substance: TRAMADOL HYDROCHLORIDE
     Indication: PRODUCT USED FOR UNKNOWN INDICATION
     Dosage: UNK
     Route: 065
     Dates: start: 201909
  3. DUPHALAC [Concomitant]
     Active Substance: LACTULOSE
     Indication: AMMONIA INCREASED
     Dosage: UNK
  4. NORMIX [Concomitant]
     Active Substance: RIFAXIMIN
     Indication: AMMONIA INCREASED
     Dosage: UNK

REACTIONS (3)
  - Coma [Fatal]
  - Death [Fatal]
  - Brain death [Fatal]

NARRATIVE: CASE EVENT DATE: 201909
